FAERS Safety Report 5804583-6 (Version None)
Quarter: 2008Q3

REPORT INFORMATION
  Report Type: 
  Country: None (occurrence: None)
  Receive Date: 20080707
  Receipt Date: 20080707
  Transmission Date: 20090109
  Serious: Yes (Hospitalization)
  Sender: FDA-Public Use
  Company Number: None

PATIENT
  Sex: Male
  Weight: 52.5 kg

DRUGS (5)
  1. ABRAXANE [Suspect]
     Indication: OESOPHAGEAL ADENOCARCINOMA
     Dosage: 429 MG D1/CYCLE 042
     Dates: start: 20080515, end: 20080605
  2. VANDETANIB [Suspect]
     Indication: OESOPHAGEAL ADENOCARCINOMA
     Dosage: 100 MG QD 047
     Dates: start: 20080515, end: 20080612
  3. ZEGARID [Concomitant]
  4. FENTANYL [Concomitant]
  5. LOVENOX [Concomitant]

REACTIONS (2)
  - DISEASE PROGRESSION [None]
  - DYSPHAGIA [None]
